FAERS Safety Report 8452373-0 (Version None)
Quarter: 2012Q2

REPORT INFORMATION
  Report Type: 
  Country: None (occurrence: None)
  Receive Date: 20120620
  Receipt Date: 20120420
  Transmission Date: 20120825
  Serious: No
  Sender: FDA-Public Use
  Company Number: US-VERTEX PHARMACEUTICALS INC.-AE-2012-005067

PATIENT
  Sex: Male
  Weight: 96.929 kg

DRUGS (7)
  1. PEGINTERFERON ALFA-2A [Concomitant]
     Indication: HEPATITIS C
     Route: 058
     Dates: start: 20120205
  2. LISINOPRIL [Concomitant]
  3. PREDNISONE TAB [Concomitant]
  4. INCIVEK [Suspect]
     Indication: HEPATITIS C
     Route: 048
     Dates: start: 20120205
  5. RIBAVIRIN [Concomitant]
     Indication: HEPATITIS C
     Route: 048
     Dates: start: 20120205
  6. PRAVASTATIN [Concomitant]
  7. ASPIRIN [Concomitant]

REACTIONS (4)
  - CHILLS [None]
  - SKIN EXFOLIATION [None]
  - RASH ERYTHEMATOUS [None]
  - PYREXIA [None]
